FAERS Safety Report 9824960 (Version 5)
Quarter: 2020Q1

REPORT INFORMATION
  Report Type: Spontaneous
  Country: US (occurrence: US)
  Receive Date: 20140117
  Receipt Date: 20200204
  Transmission Date: 20200409
  Serious: Yes (Hospitalization, Other)
  Sender: FDA-Public Use
  Company Number: US-JNJFOC-20140104862

PATIENT
  Sex: Female
  Weight: 63.56 kg

DRUGS (6)
  1. DURAGESIC [Suspect]
     Active Substance: FENTANYL
     Indication: PAIN
     Route: 062
     Dates: start: 2002
  2. DURAGESIC [Suspect]
     Active Substance: FENTANYL
     Indication: PRODUCT USED FOR UNKNOWN INDICATION
     Route: 062
  3. DURAGESIC [Suspect]
     Active Substance: FENTANYL
     Route: 062
     Dates: start: 2003
  4. DURAGESIC [Suspect]
     Active Substance: FENTANYL
     Indication: PAIN
     Route: 062
  5. DURAGESIC [Suspect]
     Active Substance: FENTANYL
     Route: 062
  6. VIVELLE [Suspect]
     Active Substance: ESTRADIOL
     Indication: PRODUCT USED FOR UNKNOWN INDICATION
     Route: 065

REACTIONS (24)
  - Uterine leiomyoma [Unknown]
  - Drug ineffective [Unknown]
  - Dermatitis contact [Unknown]
  - Product adhesion issue [Unknown]
  - Hyperhidrosis [Unknown]
  - Traumatic fracture [Unknown]
  - Accidental exposure to product [Unknown]
  - Underdose [Unknown]
  - Cervix operation [Unknown]
  - Haemorrhage [Unknown]
  - Head injury [Unknown]
  - Hernia [Unknown]
  - Overdose [Unknown]
  - Medication error [Unknown]
  - Exposure during pregnancy [Unknown]
  - Abdominal pain upper [Unknown]
  - Oophorectomy [Unknown]
  - Wrong technique in product usage process [Unknown]
  - Cardiac operation [Unknown]
  - Product complaint [Unknown]
  - Neoplasm malignant [Unknown]
  - Road traffic accident [Unknown]
  - Incontinence [Unknown]
  - Frequent bowel movements [Unknown]

NARRATIVE: CASE EVENT DATE: 2003
